FAERS Safety Report 8667853 (Version 2)
Quarter: 2012Q4

REPORT INFORMATION
  Report Type: 
  Country: US (occurrence: US)
  Receive Date: 20120717
  Receipt Date: 20120828
  Transmission Date: 20130627
  Serious: Yes (Hospitalization, Other)
  Sender: FDA-Public Use
  Company Number: US-JNJFOC-20120704159

PATIENT
  Age: 19 Year
  Sex: Male

DRUGS (6)
  1. REMICADE [Suspect]
     Indication: COLITIS ULCERATIVE
     Dosage: first dose
     Route: 042
     Dates: start: 20120703
  2. REMICADE [Suspect]
     Indication: COLITIS ULCERATIVE
     Route: 042
  3. HEPARIN [Suspect]
     Indication: THROMBOSIS
     Route: 065
  4. LOVENOX [Suspect]
     Indication: THROMBOSIS
     Route: 065
  5. COUMADIN [Suspect]
     Indication: THROMBOSIS
     Route: 048
  6. METRONIDAZOLE [Concomitant]
     Indication: CLOSTRIDIAL INFECTION
     Dosage: dose: 500 (unit unspecified)
     Route: 065
     Dates: start: 201206

REACTIONS (9)
  - Superior sagittal sinus thrombosis [Recovering/Resolving]
  - Haematoma [Unknown]
  - Cerebral venous thrombosis [Recovering/Resolving]
  - Colitis ulcerative [Recovering/Resolving]
  - Convulsion [Unknown]
  - Weight decreased [Recovering/Resolving]
  - Arthralgia [Unknown]
  - Dyspnoea [Unknown]
  - Fatigue [Unknown]
